FAERS Safety Report 4468235-X (Version None)
Quarter: 2004Q4

REPORT INFORMATION
  Report Type: 
  Country: None (occurrence: None)
  Receive Date: 20041007
  Receipt Date: 20040928
  Transmission Date: 20050328
  Serious: Yes (Hospitalization)
  Sender: FDA-Public Use
  Company Number: JP-ABBOTT-04P-087-0275173-00

PATIENT
  Sex: Male

DRUGS (8)
  1. EURODIN [Suspect]
     Indication: INSOMNIA
     Route: 048
     Dates: start: 20040610, end: 20040723
  2. EURODIN [Suspect]
     Route: 048
     Dates: start: 20040726, end: 20040806
  3. EURODIN [Suspect]
     Route: 048
     Dates: start: 20040303, end: 20040527
  4. PROSULTIAMINE [Suspect]
     Indication: VITAMIN SUPPLEMENTATION
     Route: 048
  5. SENNOSIDE A+B [Concomitant]
     Indication: DRUG USE FOR UNKNOWN INDICATION
     Route: 048
     Dates: start: 20040805
  6. LACTOBACILLUS BIFIDUS, LYOPHILIZED [Concomitant]
     Indication: DRUG USE FOR UNKNOWN INDICATION
     Route: 048
     Dates: start: 20040806
  7. LORAZEPAM [Concomitant]
     Indication: DRUG USE FOR UNKNOWN INDICATION
  8. ZOPICLONE [Concomitant]
     Indication: DRUG USE FOR UNKNOWN INDICATION

REACTIONS (9)
  - ABDOMINAL PAIN UPPER [None]
  - ALANINE AMINOTRANSFERASE INCREASED [None]
  - ANOREXIA [None]
  - ASPARTATE AMINOTRANSFERASE INCREASED [None]
  - BLOOD ALKALINE PHOSPHATASE INCREASED [None]
  - BLOOD BILIRUBIN INCREASED [None]
  - GAMMA-GLUTAMYLTRANSFERASE INCREASED [None]
  - HEPATIC FUNCTION ABNORMAL [None]
  - PYREXIA [None]
